FAERS Safety Report 9112584 (Version 1)
Quarter: 2013Q1

REPORT INFORMATION
  Report Type: Spontaneous
  Country: IN (occurrence: IN)
  Receive Date: 20130211
  Receipt Date: 20130211
  Transmission Date: 20140127
  Serious: Yes (Hospitalization)
  Sender: FDA-Public Use
  Company Number: IN-MERCK-1302IND002223

PATIENT
  Age: 54 Year
  Sex: Female

DRUGS (1)
  1. JANUMET [Suspect]
     Dosage: UNK, QD
     Route: 048

REACTIONS (2)
  - Blood glucose fluctuation [Unknown]
  - Feeling cold [Unknown]
